FAERS Safety Report 4479058-X (Version None)
Quarter: 2004Q4

REPORT INFORMATION
  Report Type: 
  Country: None (occurrence: None)
  Receive Date: 20041015
  Receipt Date: 20040927
  Transmission Date: 20050328
  Serious: Yes (Other)
  Sender: FDA-Public Use
  Company Number: JP_031202295

PATIENT
  Age: 30 Year
  Sex: Male

DRUGS (2)
  1. ZYPREXA [Suspect]
     Indication: SCHIZOPHRENIA
     Dosage: 10 MG DAY
     Dates: start: 20010825, end: 20020624
  2. CLONAZEPAM [Concomitant]

REACTIONS (4)
  - ABASIA [None]
  - BLEPHAROSPASM [None]
  - DRUG INEFFECTIVE [None]
  - PHOTOPHOBIA [None]
